FAERS Safety Report 7750573-6 (Version None)
Quarter: 2011Q3

REPORT INFORMATION
  Report Type: 
  Country: None (occurrence: None)
  Receive Date: 20110912
  Receipt Date: 20110830
  Transmission Date: 20111222
  Serious: Yes (Death, Hospitalization, Congenital Anomaly)
  Sender: FDA-Public Use
  Company Number: 2011PL000124

PATIENT
  Age: 8 Day
  Sex: Male
  Weight: 3 kg

DRUGS (3)
  1. ALDOMET [Concomitant]
  2. MULTI-VITAMIN [Concomitant]
  3. ALLOPURINOL [Suspect]
     Indication: NEPHROLITHIASIS
     Dosage: 300 MG;QD;TRPL
     Route: 064

REACTIONS (19)
  - FAILURE TO THRIVE [None]
  - DIAPHRAGMATIC HERNIA [None]
  - CONGENITAL CENTRAL NERVOUS SYSTEM ANOMALY [None]
  - MICROGNATHIA [None]
  - MICROTIA [None]
  - KIDNEY ENLARGEMENT [None]
  - MICROPHTHALMOS [None]
  - CRYPTORCHISM [None]
  - COLOBOMA [None]
  - OPTIC ATROPHY [None]
  - NEONATAL RESPIRATORY FAILURE [None]
  - MATERNAL DRUGS AFFECTING FOETUS [None]
  - CONGENITAL HYDROCEPHALUS [None]
  - CLEFT LIP AND PALATE [None]
  - RENAL APLASIA [None]
  - PULMONARY HYPOPLASIA [None]
  - HYPERTELORISM OF ORBIT [None]
  - NEONATAL CARDIAC FAILURE [None]
  - ACCESSORY SPLEEN [None]
